FAERS Safety Report 8154958-8 (Version None)
Quarter: 2012Q1

REPORT INFORMATION
  Report Type: 
  Country: None (occurrence: None)
  Receive Date: 20120221
  Receipt Date: 20120216
  Transmission Date: 20120608
  Serious: Yes (Death, Life-Threatening, Hospitalization)
  Sender: FDA-Public Use
  Company Number: PHHY2012MX013882

PATIENT
  Sex: Male

DRUGS (3)
  1. ONBREZ [Suspect]
     Indication: CHRONIC OBSTRUCTIVE PULMONARY DISEASE
     Dosage: 150 UG, QD
     Dates: start: 20111226, end: 20120126
  2. CAPTOPRIL [Concomitant]
     Indication: HYPERTENSION
  3. OXYGEN [Concomitant]
     Dosage: UNK
     Dates: start: 20111226

REACTIONS (7)
  - PYREXIA [None]
  - DECREASED APPETITE [None]
  - INCOHERENT [None]
  - PNEUMONIA [None]
  - DYSPNOEA [None]
  - SOMNOLENCE [None]
  - PAIN [None]
